FAERS Safety Report 19373150 (Version 2)
Quarter: 2022Q4

REPORT INFORMATION
  Report Type: Spontaneous
  Country: RU (occurrence: None)
  Receive Date: 20210604
  Receipt Date: 20221118
  Transmission Date: 20230112
  Serious: Yes (Other)
  Sender: FDA-Public Use
  Company Number: RU-ROCHE-2838098

PATIENT
  Age: 34 Year
  Sex: Female

DRUGS (4)
  1. KADCYLA [Suspect]
     Active Substance: ADO-TRASTUZUMAB EMTANSINE
     Indication: Product used for unknown indication
     Route: 065
     Dates: start: 202010
  2. TRASTUZUMAB [Suspect]
     Active Substance: TRASTUZUMAB
     Indication: Product used for unknown indication
     Route: 065
  3. ZOLADEX [Concomitant]
     Active Substance: GOSERELIN ACETATE
  4. LETROZOLE [Concomitant]
     Active Substance: LETROZOLE

REACTIONS (8)
  - Metastases to central nervous system [Unknown]
  - Metastases to lung [Unknown]
  - Breast ulceration [Unknown]
  - Maternal exposure during pregnancy [Unknown]
  - Metastases to skin [Unknown]
  - Breast enlargement [Unknown]
  - Ill-defined disorder [Unknown]
  - Therapeutic response decreased [Unknown]
